FAERS Safety Report 5204686-3 (Version None)
Quarter: 2007Q1

REPORT INFORMATION
  Report Type: 
  Country: None (occurrence: None)
  Receive Date: 20070110
  Receipt Date: 20060614
  Transmission Date: 20070707
  Serious: No
  Sender: FDA-Public Use
  Company Number: US-BRISTOL-MYERS SQUIBB COMPANY-13412721

PATIENT
  Age: 6 Decade
  Sex: Female
  Weight: 66 kg

DRUGS (7)
  1. ABILIFY [Suspect]
     Indication: BIPOLAR DISORDER
     Dates: start: 20060613
  2. ZYPREXA [Concomitant]
  3. LEVOTHYROXINE SODIUM [Concomitant]
  4. LOVASTATIN [Concomitant]
  5. IBUPROFEN [Concomitant]
  6. OMEGA 3 FATTY ACID [Concomitant]
  7. LEXAPRO [Concomitant]

REACTIONS (2)
  - MIGRAINE [None]
  - PALPITATIONS [None]
